FAERS Safety Report 5422424-6 (Version None)
Quarter: 2007Q3

REPORT INFORMATION
  Report Type: 
  Country: None (occurrence: None)
  Receive Date: 20070822
  Receipt Date: 20070810
  Transmission Date: 20080115
  Serious: Yes (Life-Threatening)
  Sender: FDA-Public Use
  Company Number: B0482293A

PATIENT
  Age: 44 Year
  Sex: Male

DRUGS (3)
  1. LAMOTRIGINE [Suspect]
     Dosage: 6000MG PER DAY
     Route: 065
     Dates: start: 20070723, end: 20070723
  2. LITHIUM CARBONATE [Concomitant]
     Indication: BIPOLAR DISORDER
     Route: 065
  3. CLOPIXOL [Concomitant]

REACTIONS (5)
  - HYPERTONIA [None]
  - NERVOUS SYSTEM DISORDER [None]
  - NEUROLEPTIC MALIGNANT SYNDROME [None]
  - OVERDOSE [None]
  - SEROTONIN SYNDROME [None]
